FAERS Safety Report 9464265 (Version 6)
Quarter: 2014Q4

REPORT INFORMATION
  Report Type: Spontaneous
  Country: US (occurrence: US)
  Receive Date: 20130819
  Receipt Date: 20141006
  Transmission Date: 20150529
  Serious: Yes (Hospitalization, Other)
  Sender: FDA-Public Use
  Company Number: US-009507513-1308USA006558

PATIENT
  Sex: Female

DRUGS (2)
  1. ALENDRONATE SODIUM. [Suspect]
     Active Substance: ALENDRONATE SODIUM
     Indication: OSTEOPOROSIS
     Dosage: 70 MG, QW
     Route: 048
     Dates: start: 20080412, end: 201401
  2. FOSAMAX [Suspect]
     Active Substance: ALENDRONATE SODIUM
     Indication: OSTEOPOROSIS
     Dosage: 70 MG, UNK
     Route: 048
     Dates: start: 2004

REACTIONS (18)
  - Ligament sprain [Unknown]
  - Asthma [Unknown]
  - Laparotomy [Unknown]
  - Intramedullary rod insertion [Unknown]
  - Type 2 diabetes mellitus [Unknown]
  - Hypothyroidism [Unknown]
  - Hysterectomy [Unknown]
  - Intramedullary rod insertion [Unknown]
  - Haemorrhagic anaemia [Unknown]
  - Thyroidectomy [Unknown]
  - Cataract operation [Unknown]
  - Vertigo [Unknown]
  - Femur fracture [Unknown]
  - Spinal laminectomy [Unknown]
  - Vitamin D deficiency [Unknown]
  - Femur fracture [Unknown]
  - Hypotension [Recovered/Resolved]
  - Asthenia [Unknown]

NARRATIVE: CASE EVENT DATE: 2006
